FAERS Safety Report 24956446 (Version 10)
Quarter: 2025Q2

REPORT INFORMATION
  Report Type: Spontaneous
  Country: US (occurrence: US)
  Receive Date: 20250211
  Receipt Date: 20250507
  Transmission Date: 20250717
  Serious: No
  Sender: BIOGEN
  Company Number: US-BIOGEN-2025BI01299824

PATIENT
  Sex: Female

DRUGS (15)
  1. AVONEX [Suspect]
     Active Substance: INTERFERON BETA-1A
     Indication: Multiple sclerosis
     Route: 050
     Dates: start: 20030717, end: 20031212
  2. AVONEX [Suspect]
     Active Substance: INTERFERON BETA-1A
     Dosage: AVONEX PREFILLED SYRINGE 30 MCG/0.5 ML INTRAMUSCULAR KIT
     Route: 050
  3. AVONEX [Suspect]
     Active Substance: INTERFERON BETA-1A
  4. AVONEX [Suspect]
     Active Substance: INTERFERON BETA-1A
  5. AMBIEN [Concomitant]
     Active Substance: ZOLPIDEM TARTRATE
     Route: 050
  6. BUPROPION HYDROCHLORIDE [Concomitant]
     Active Substance: BUPROPION HYDROCHLORIDE
     Route: 050
  7. CLONAZEPAM [Concomitant]
     Active Substance: CLONAZEPAM
     Route: 050
  8. FENOFIBRATE [Concomitant]
     Active Substance: FENOFIBRATE
     Route: 050
  9. GABAPENTIN [Concomitant]
     Active Substance: GABAPENTIN
     Route: 050
  10. PANTOPRAZOLE SODIUM [Concomitant]
     Active Substance: PANTOPRAZOLE SODIUM
     Route: 050
  11. TOPROL XL [Concomitant]
     Active Substance: METOPROLOL SUCCINATE
     Route: 050
  12. IBUPROFEN [Concomitant]
     Active Substance: IBUPROFEN
     Route: 050
  13. VITAMIN D3 [Concomitant]
     Active Substance: CHOLECALCIFEROL
     Route: 050
  14. LIPITOR [Concomitant]
     Active Substance: ATORVASTATIN CALCIUM
     Route: 050
  15. VITAMIN C [Concomitant]
     Active Substance: ASCORBIC ACID
     Route: 050

REACTIONS (6)
  - Influenza [Unknown]
  - Drooling [Unknown]
  - Illness [Unknown]
  - Hemihypoaesthesia [Unknown]
  - Vomiting [Unknown]
  - Malaise [Unknown]
